FAERS Safety Report 23756022 (Version 1)
Quarter: 2024Q2

REPORT INFORMATION
  Report Type: Spontaneous
  Country: US (occurrence: US)
  Receive Date: 20240418
  Receipt Date: 20240418
  Transmission Date: 20240716
  Serious: Yes (Other)
  Sender: FDA-Public Use
  Company Number: US-BRISTOL-MYERS SQUIBB COMPANY-2024-057633

PATIENT
  Age: 78 Year
  Sex: Male

DRUGS (2)
  1. LENALIDOMIDE [Suspect]
     Active Substance: LENALIDOMIDE
     Indication: Chronic kidney disease
     Route: 048
  2. LENALIDOMIDE [Suspect]
     Active Substance: LENALIDOMIDE
     Dosage: 3X PER WEEK
     Route: 048
     Dates: end: 202404

REACTIONS (5)
  - Renal disorder [Recovered/Resolved]
  - Product dose omission issue [Unknown]
  - Hypotension [Recovered/Resolved]
  - Off label use [Unknown]
  - Therapy interrupted [Unknown]
